FAERS Safety Report 10016745 (Version 2)
Quarter: 2014Q2

REPORT INFORMATION
  Report Type: Report from Study
  Country: NL (occurrence: NL)
  Receive Date: 20140318
  Receipt Date: 20140417
  Transmission Date: 20141212
  Serious: Yes (Hospitalization, Other)
  Sender: FDA-Public Use
  Company Number: PHHY2014NL031567

PATIENT
  Age: 76 Year
  Sex: Male

DRUGS (1)
  1. ZOMETA [Suspect]
     Indication: PROSTATE CANCER METASTATIC
     Dosage: 4 MG/100 ML, ONCE PER 3 WEEKS
     Route: 042

REACTIONS (2)
  - General physical health deterioration [Not Recovered/Not Resolved]
  - Terminal state [Not Recovered/Not Resolved]
